FAERS Safety Report 8192579-1 (Version None)
Quarter: 2012Q1

REPORT INFORMATION
  Report Type: 
  Country: None (occurrence: None)
  Receive Date: 20120308
  Receipt Date: 20120227
  Transmission Date: 20120608
  Serious: Yes (Other)
  Sender: FDA-Public Use
  Company Number: US-BAYER-2012-019924

PATIENT
  Sex: Female

DRUGS (1)
  1. MIRENA [Suspect]
     Indication: CONTRACEPTION
     Dosage: 20 MCG/24HR, CONT
     Route: 015

REACTIONS (13)
  - ACNE [None]
  - HAEMORRHOIDS [None]
  - MOOD SWINGS [None]
  - LOSS OF LIBIDO [None]
  - NAUSEA [None]
  - MIGRAINE [None]
  - MUSCLE SPASMS [None]
  - POLYMENORRHOEA [None]
  - ADVERSE EVENT [None]
  - GALLBLADDER DISORDER [None]
  - ANAEMIA [None]
  - CONSTIPATION [None]
  - FLATULENCE [None]
